FAERS Safety Report 11138860 (Version 4)
Quarter: 2020Q3

REPORT INFORMATION
  Report Type: Spontaneous
  Country: US (occurrence: US)
  Receive Date: 20150527
  Receipt Date: 20200828
  Transmission Date: 20201102
  Serious: Yes (Hospitalization, Other)
  Sender: FDA-Public Use
  Company Number: US-AUROBINDO-AUR-APL-2015-04529

PATIENT
  Age: 74 Year
  Sex: Male

DRUGS (4)
  1. FLUDROCORTISONE [Suspect]
     Active Substance: FLUDROCORTISONE
     Indication: PRODUCT USED FOR UNKNOWN INDICATION
     Dosage: 0.1 MG, ONCE A DAY
     Route: 065
  2. MIDODRINE [Suspect]
     Active Substance: MIDODRINE
     Indication: PRODUCT USED FOR UNKNOWN INDICATION
     Dosage: 5 MG, 3 TIMES A DAY
     Route: 065
  3. LOSARTAN 25MG [Suspect]
     Active Substance: LOSARTAN
     Indication: PRODUCT USED FOR UNKNOWN INDICATION
     Dosage: 25 MG, ONCE A DAY
     Route: 065
  4. CARVEDILOL  3.125 MG [Suspect]
     Active Substance: CARVEDILOL
     Indication: PRODUCT USED FOR UNKNOWN INDICATION
     Dosage: 3.125 MG, TWO TIMES A DAY
     Route: 065

REACTIONS (7)
  - Dizziness [Recovering/Resolving]
  - Executive dysfunction [Recovering/Resolving]
  - Orthostatic hypotension [Recovering/Resolving]
  - Fall [Unknown]
  - Cognitive disorder [Recovering/Resolving]
  - Contusion [Unknown]
  - Blood pressure fluctuation [Unknown]
